FAERS Safety Report 7406952-X (Version None)
Quarter: 2011Q2

REPORT INFORMATION
  Report Type: 
  Country: None (occurrence: None)
  Receive Date: 20110411
  Receipt Date: 20110407
  Transmission Date: 20111010
  Serious: No
  Sender: FDA-Public Use
  Company Number: US-PFIZER INC-2010095572

PATIENT
  Sex: Female
  Weight: 68 kg

DRUGS (2)
  1. ADVIL PM [Interacting]
     Dosage: UNK
  2. CHANTIX [Suspect]
     Indication: SMOKING CESSATION THERAPY
     Dosage: 1 MG, 2X/DAY
     Route: 048
     Dates: start: 20090201

REACTIONS (2)
  - DRUG INTERACTION [None]
  - DIZZINESS [None]
